FAERS Safety Report 22260907 (Version 6)
Quarter: 2023Q2

REPORT INFORMATION
  Report Type: Spontaneous
  Country: US (occurrence: US)
  Receive Date: 20230427
  Receipt Date: 20230627
  Transmission Date: 20230722
  Serious: No
  Sender: FDA-Public Use
  Company Number: US-002147023-NVSC2023US096516

PATIENT
  Age: 71 Year
  Sex: Male

DRUGS (3)
  1. XIIDRA [Suspect]
     Active Substance: LIFITEGRAST
     Indication: Dry eye
     Dosage: 1 DRP,( IN EACH EYE IN THE MORNING AND EVENING 2 DAYS IN A ROW ON THURSDAY, FRIDAY AND TWICE ON SATU
     Route: 047
     Dates: start: 20230413, end: 20230415
  2. ATORVASTATIN [Concomitant]
     Active Substance: ATORVASTATIN
     Indication: Product used for unknown indication
     Dosage: 20 MG
     Route: 065
  3. LOSARTAN POTASSIUM [Concomitant]
     Active Substance: LOSARTAN POTASSIUM
     Indication: Product used for unknown indication
     Dosage: 50 MG
     Route: 065

REACTIONS (7)
  - Visual impairment [Recovered/Resolved]
  - Eye discharge [Unknown]
  - Eye inflammation [Recovered/Resolved]
  - Eye swelling [Unknown]
  - Photophobia [Recovered/Resolved]
  - Ocular hyperaemia [Unknown]
  - Dry eye [Recovered/Resolved]

NARRATIVE: CASE EVENT DATE: 20230415
